FAERS Safety Report 4915628-X (Version None)
Quarter: 2006Q1

REPORT INFORMATION
  Report Type: 
  Country: None (occurrence: None)
  Receive Date: 20060217
  Receipt Date: 20050930
  Transmission Date: 20060701
  Serious: Yes (Hospitalization)
  Sender: FDA-Public Use
  Company Number: US-MERCK-0510USA01010

PATIENT
  Age: 61 Year
  Sex: Female

DRUGS (1)
  1. VIOXX [Suspect]
     Route: 048

REACTIONS (16)
  - ANGINA PECTORIS [None]
  - ANGIOPATHY [None]
  - ARRHYTHMIA [None]
  - BACK PAIN [None]
  - CARDIOVASCULAR DISORDER [None]
  - CEREBROVASCULAR ACCIDENT [None]
  - DEMYELINATION [None]
  - GASTROOESOPHAGEAL REFLUX DISEASE [None]
  - ISCHAEMIA [None]
  - LACUNAR INFARCTION [None]
  - LUNG NEOPLASM [None]
  - MYOCARDIAL INFARCTION [None]
  - ORGAN FAILURE [None]
  - PEPTIC ULCER [None]
  - PULMONARY EMBOLISM [None]
  - THROMBOSIS [None]
